FAERS Safety Report 14289179 (Version 2)
Quarter: 2018Q1

REPORT INFORMATION
  Report Type: Spontaneous
  Country: JP (occurrence: JP)
  Receive Date: 20171214
  Receipt Date: 20180315
  Transmission Date: 20180509
  Serious: Yes (Hospitalization)
  Sender: FDA-Public Use
  Company Number: JP-ELI_LILLY_AND_COMPANY-JP201712003863

PATIENT
  Age: 79 Year
  Sex: Male
  Weight: 67 kg

DRUGS (9)
  1. FLUOROURACIL. [Concomitant]
     Active Substance: FLUOROURACIL
     Dosage: 300 MG, CYCLICAL
     Route: 041
     Dates: start: 20170424, end: 20170927
  2. LEVOFOLINATE                       /06682103/ [Concomitant]
     Active Substance: LEVOLEUCOVORIN CALCIUM
     Indication: RECTAL CANCER RECURRENT
     Dosage: 300 MG, CYCLICAL
     Route: 042
     Dates: start: 20170424, end: 20170927
  3. CYRAMZA [Suspect]
     Active Substance: RAMUCIRUMAB
     Indication: RECTAL CANCER RECURRENT
     Dosage: 500 MG, CYCLICAL
     Route: 042
     Dates: start: 20170424, end: 20170927
  4. IRINOTECAN [Concomitant]
     Active Substance: IRINOTECAN
     Indication: RECTAL CANCER RECURRENT
     Dosage: 180 MG, CYCLICAL
     Route: 042
     Dates: start: 20170424, end: 20170927
  5. DECADRON [Concomitant]
     Active Substance: DEXAMETHASONE
     Indication: PROPHYLAXIS OF NAUSEA AND VOMITING
     Dosage: 3.3 MG, CYCLICAL
     Route: 042
     Dates: start: 20170424, end: 20170927
  6. FLUOROURACIL. [Concomitant]
     Active Substance: FLUOROURACIL
     Indication: RECTAL CANCER RECURRENT
     Dosage: 250 MG, CYCLICAL
     Route: 042
     Dates: start: 20170424, end: 20170927
  7. PROEMEND [Concomitant]
     Active Substance: FOSAPREPITANT
     Indication: PROPHYLAXIS OF NAUSEA AND VOMITING
     Dosage: 150 MG, CYCLICAL
     Route: 042
     Dates: start: 20170424, end: 20170927
  8. ALOXI [Concomitant]
     Active Substance: PALONOSETRON HYDROCHLORIDE
     Indication: PROPHYLAXIS OF NAUSEA AND VOMITING
     Dosage: 0.75 MG, CYCLICAL
     Route: 042
     Dates: start: 20170424, end: 20170927
  9. POLARAMINE [Concomitant]
     Active Substance: DEXCHLORPHENIRAMINE MALEATE
     Indication: PROPHYLAXIS
     Dosage: 5 MG, DAILY
     Route: 042
     Dates: start: 20170424, end: 20170927

REACTIONS (1)
  - Colitis ischaemic [Recovered/Resolved]

NARRATIVE: CASE EVENT DATE: 20170929
